FAERS Safety Report 22149739 (Version 3)
Quarter: 2023Q2

REPORT INFORMATION
  Report Type: Report from Study
  Country: IE (occurrence: IE)
  Receive Date: 20230329
  Receipt Date: 20230418
  Transmission Date: 20230722
  Serious: No
  Sender: FDA-Public Use
  Company Number: IE-JNJFOC-20230243510

PATIENT
  Sex: Female

DRUGS (3)
  1. STELARA [Suspect]
     Active Substance: USTEKINUMAB
     Indication: Crohn^s disease
     Dosage: STRENGTH: 90.00 MG/ML
     Route: 058
     Dates: start: 20230104
  2. STELARA [Suspect]
     Active Substance: USTEKINUMAB
     Route: 058
  3. DELTACORTRIL [Concomitant]
     Active Substance: PREDNISOLONE
     Dosage: ONCE DAILY

REACTIONS (2)
  - Device deployment issue [Unknown]
  - Off label use [Unknown]
